FAERS Safety Report 20202026 (Version 2)
Quarter: 2021Q4

REPORT INFORMATION
  Report Type: Report from Study
  Country: CN (occurrence: CN)
  Receive Date: 20211217
  Receipt Date: 20211228
  Transmission Date: 20220303
  Serious: Yes (Hospitalization)
  Sender: FDA-Public Use
  Company Number: CN-JNJFOC-20211223051

PATIENT
  Age: 57 Year
  Sex: Male
  Weight: 82 kg

DRUGS (17)
  1. AMIVANTAMAB [Suspect]
     Active Substance: AMIVANTAMAB
     Indication: Non-small cell lung cancer
     Dosage: DOSE 1050, UNITS NOT PROVIDED
     Route: 042
     Dates: start: 20211013, end: 20211124
  2. RIVAROXABAN [Suspect]
     Active Substance: RIVAROXABAN
     Indication: Venous thrombosis limb
     Dosage: ANTICOAGULANT TREATMENT
     Route: 048
     Dates: start: 20211112, end: 20211115
  3. RIVAROXABAN [Suspect]
     Active Substance: RIVAROXABAN
     Dates: start: 20211115, end: 20211209
  4. ENOXAPARIN SODIUM [Concomitant]
     Active Substance: ENOXAPARIN SODIUM
     Indication: Anticoagulant therapy
  5. DICLOFENAC SODIUM [Concomitant]
     Active Substance: DICLOFENAC SODIUM
     Indication: Pain
     Dosage: TO RELIEVE PAIN
  6. BICYCLOL [Concomitant]
     Active Substance: BICYCLOL
     Indication: Alanine aminotransferase increased
     Dates: start: 20211207
  7. LECITHIN [Concomitant]
     Active Substance: LECITHIN
     Indication: Alanine aminotransferase increased
     Dates: start: 20211207
  8. MINOCYCLINE HYDROCHLORIDE [Concomitant]
     Active Substance: MINOCYCLINE HYDROCHLORIDE
     Indication: Rash
     Route: 048
     Dates: start: 20211024
  9. MINOCYCLINE HYDROCHLORIDE [Concomitant]
     Active Substance: MINOCYCLINE HYDROCHLORIDE
     Indication: Rash
  10. MINOCYCLINE HYDROCHLORIDE [Concomitant]
     Active Substance: MINOCYCLINE HYDROCHLORIDE
     Indication: Rash
  11. PROVIDONE IODINE [Concomitant]
     Indication: Rash
     Route: 061
     Dates: start: 20211030
  12. PROVIDONE IODINE [Concomitant]
     Indication: Rash
  13. PROVIDONE IODINE [Concomitant]
     Indication: Rash
  14. MEGESTROL ACETATE [Concomitant]
     Active Substance: MEGESTROL ACETATE
     Indication: Decreased appetite
     Dosage: ^1 PUFF^
     Route: 048
     Dates: start: 20211103
  15. FUSIDIC ACID [Concomitant]
     Active Substance: FUSIDIC ACID
     Indication: Rash
     Route: 061
     Dates: start: 20211024
  16. FUSIDIC ACID [Concomitant]
     Active Substance: FUSIDIC ACID
     Indication: Rash
  17. FUSIDIC ACID [Concomitant]
     Active Substance: FUSIDIC ACID
     Indication: Rash

REACTIONS (1)
  - Renal haemorrhage [Recovering/Resolving]

NARRATIVE: CASE EVENT DATE: 20211209
